FAERS Safety Report 17192159 (Version 1)
Quarter: 2019Q4

REPORT INFORMATION
  Report Type: Report from Study
  Country: US (occurrence: US)
  Receive Date: 20191223
  Receipt Date: 20191223
  Transmission Date: 20200122
  Serious: Yes (Other)
  Sender: FDA-Public Use
  Company Number: US-PFIZER INC-2019333541

PATIENT
  Age: 75 Year
  Sex: Female

DRUGS (2)
  1. IBRANCE [Suspect]
     Active Substance: PALBOCICLIB
     Indication: BREAST CANCER FEMALE
     Dosage: 125 MG, CYCLIC (DAILY, CYCLE IS 21 OUT OF 28 DAYS)
     Route: 048
     Dates: start: 20190716, end: 2019
  2. IBRANCE [Suspect]
     Active Substance: PALBOCICLIB
     Dosage: 100 MG, CYCLIC (DAILY, CYCLE IS 21 OUT OF 28 DAYS)
     Route: 048
     Dates: start: 20190920, end: 2019

REACTIONS (15)
  - Thrombocytopenia [Recovering/Resolving]
  - Oral pain [Recovering/Resolving]
  - Platelet count decreased [Recovering/Resolving]
  - Skin ulcer [Unknown]
  - Leukopenia [Recovering/Resolving]
  - Fatigue [Recovering/Resolving]
  - Chills [Unknown]
  - Pyrexia [Unknown]
  - Mouth ulceration [Unknown]
  - Bone marrow failure [Unknown]
  - Oropharyngeal pain [Not Recovered/Not Resolved]
  - White blood cell count decreased [Recovering/Resolving]
  - Thrombosis [Unknown]
  - Rhinorrhoea [Unknown]
  - Nausea [Recovering/Resolving]

NARRATIVE: CASE EVENT DATE: 2019
